FAERS Safety Report 11721976 (Version 1)
Quarter: 2015Q4

REPORT INFORMATION
  Report Type: Spontaneous
  Country: US (occurrence: None)
  Receive Date: 20151110
  Receipt Date: 20151110
  Transmission Date: 20160304
  Serious: Yes (Hospitalization)
  Sender: FDA-Public Use
  Company Number: None

PATIENT
  Age: 69 Year
  Sex: Male
  Weight: 112.4 kg

DRUGS (3)
  1. ASPIRIN. [Suspect]
     Active Substance: ASPIRIN
     Indication: CORONARY ARTERIAL STENT INSERTION
     Route: 048
     Dates: start: 20131101, end: 20131117
  2. WARFARIN [Suspect]
     Active Substance: WARFARIN
     Indication: TRANSIENT ISCHAEMIC ATTACK
     Route: 048
     Dates: start: 20131230, end: 20141001
  3. WARFARIN [Suspect]
     Active Substance: WARFARIN
     Indication: ATRIAL FIBRILLATION
     Route: 048
     Dates: start: 20131230, end: 20141001

REACTIONS (5)
  - Haemorrhage [None]
  - Hypertension [None]
  - Cerebrovascular accident [None]
  - Transient ischaemic attack [None]
  - Cerebral haemorrhage [None]

NARRATIVE: CASE EVENT DATE: 20140930
